FAERS Safety Report 5844711-X (Version None)
Quarter: 2008Q3

REPORT INFORMATION
  Report Type: 
  Country: None (occurrence: None)
  Receive Date: 20080814
  Receipt Date: 20070619
  Transmission Date: 20090109
  Serious: No
  Sender: FDA-Public Use
  Company Number: US-BAYER-US-2007-023050

PATIENT
  Age: 60 Year
  Sex: Female
  Weight: 59 kg

DRUGS (16)
  1. MAGNEVIST [Suspect]
     Indication: NUCLEAR MAGNETIC RESONANCE IMAGING BRAIN
     Dosage: TOTAL DAILY DOSE: 12 ML
     Route: 042
     Dates: start: 20070606, end: 20070606
  2. FLOVENT [Concomitant]
  3. ESTRACE [Concomitant]
  4. ZOVIRAX [Concomitant]
  5. PYRIDIUM PLUS [Concomitant]
  6. TRAZODONE HCL [Concomitant]
  7. EFFEXOR [Concomitant]
  8. FLUCONAZOLE [Concomitant]
  9. DARVON [Concomitant]
  10. ULTRAM [Concomitant]
  11. PLAVIX [Concomitant]
  12. NITROGLYCERIN [Concomitant]
  13. FLONASE [Concomitant]
  14. CALTRATE [Concomitant]
  15. CENTRUM SILVER [Concomitant]
  16. VITAMIN B COMPLEX CAP [Concomitant]

REACTIONS (3)
  - ANGIOEDEMA [None]
  - HYPERSENSITIVITY [None]
  - URTICARIA [None]
